FAERS Safety Report 19285424 (Version 2)
Quarter: 2021Q3

REPORT INFORMATION
  Report Type: Spontaneous
  Country: NL (occurrence: NL)
  Receive Date: 20210521
  Receipt Date: 20210702
  Transmission Date: 20211014
  Serious: Yes (Hospitalization)
  Sender: FDA-Public Use
  Company Number: NL-VERTEX PHARMACEUTICALS-2021-007708

PATIENT
  Sex: Female

DRUGS (20)
  1. OXAZEPAM. [Concomitant]
     Active Substance: OXAZEPAM
     Dosage: 10 MG, QD (IF NEEDED) TABLET
     Route: 048
  2. INSULIN ASPART [Concomitant]
     Active Substance: INSULIN ASPART
     Dosage: 8 IU, QD,  SOLUTION FOR INJECTION
     Route: 058
  3. MUCOCLEAR [SODIUM CHLORIDE] [Concomitant]
     Dosage: 1 DOSAGE FORM, QD (NACL NEBULIZER SOLUTION)
     Route: 055
  4. CITALOPRAM [Concomitant]
     Active Substance: CITALOPRAM HYDROBROMIDE
     Dosage: 20 MG, QD (COATED TABLET)
     Route: 048
  5. LEVEMIR [Concomitant]
     Active Substance: INSULIN DETEMIR
     Dosage: 4 DOSAGE FORM, QD (IN THE MORNING)
  6. ALENDRONINEZUUR [Concomitant]
     Active Substance: ALENDRONIC ACID
     Dosage: 70 MG, ONLY ON TUESDAY TABLET
  7. RITALIN [Concomitant]
     Active Substance: METHYLPHENIDATE HYDROCHLORIDE
     Dosage: 20 MG, QD, TABLET
     Route: 048
  8. FENOTEROL;IPRATROPIUM [Concomitant]
     Active Substance: FENOTEROL\IPRATROPIUM
     Dosage: 1 DOSAGE FORM, BID (AEROSOL 50/20UG/DO 200DO INH)
  9. TRAMADOL. [Concomitant]
     Active Substance: TRAMADOL
     Dosage: 50 MG, 4X DIALY IF NEEDED, CAPSULE
     Route: 048
  10. SYMKEVI [Suspect]
     Active Substance: IVACAFTOR\TEZACAFTOR
     Indication: CYSTIC FIBROSIS
     Dosage: 1 DOSAGE FORM, QD (100MG TEZACAFTOR/150MG IVACAFTOR)
     Route: 048
  11. IPRATROPIUM BROMIDE AND SALBUTAMOL SULFATE [Concomitant]
     Active Substance: ALBUTEROL SULFATE\IPRATROPIUM BROMIDE
     Dosage: 1 DOSAGE FORM, BID (NEBULIZER SOLUTION)
  12. MOLAXOLE [Concomitant]
     Active Substance: POLYETHYLENE GLYCOL 3350\POTASSIUM CHLORIDE\SODIUM BICARBONATE\SODIUM CHLORIDE
     Dosage: IF NEEDED, 2XDAILY 1 UNIT UP TO 2SACHETS 2XDAILY
     Route: 048
  13. MICONAZOLE. [Concomitant]
     Active Substance: MICONAZOLE
     Dosage: 1200 MG, SINGLE USE (VAGINAL CAP)
     Route: 067
  14. ETHINYLESTRADIOL/LEVONORGESTREL [Concomitant]
     Active Substance: ETHINYL ESTRADIOL\LEVONORGESTREL
     Dosage: 1 DOSAGE FORM (50/125 UG), QD TABLET
     Route: 048
  15. SALMETEROL AND FLUTICASONE [Concomitant]
     Active Substance: FLUTICASONE PROPIONATE\SALMETEROL XINAFOATE
     Dosage: 2 DOSAGE FORM, BID (AEROSOL 25/250UG/DO 120DO)
  16. PARACETAMOL [Concomitant]
     Active Substance: ACETAMINOPHEN
     Dosage: 2 DOSAGE FORM, TID (TABLET 500MG)
     Route: 048
  17. COTRIMOXAZOLE [Concomitant]
     Active Substance: SULFAMETHOXAZOLE\TRIMETHOPRIM
     Dosage: 1 DOSAGE FORM (160/800MG), ONLY ON TUESDAY TABLET
     Route: 048
  18. MOVICOL [Concomitant]
     Active Substance: POLYETHYLENE GLYCOL 3350\POTASSIUM CHLORIDE\SODIUM BICARBONATE\SODIUM CHLORIDE
     Dosage: IF NEEDED, 2XDAILY 1UNIT UP TO 2 SACHETS 2XDAILY
     Route: 048
  19. DORNASE ALFA. [Concomitant]
     Active Substance: DORNASE ALFA
     Dosage: 1 MG/ML AMP. 2.5 ML NEBULIZE
     Route: 055
  20. FERROUS SULPHATE [FERROUS SULFATE] [Concomitant]
     Active Substance: FERROUS SULFATE
     Dosage: 105 MG, QD (REGULATED RELEASE TABLET)
     Route: 048

REACTIONS (8)
  - Myalgia [Unknown]
  - Malnutrition [Unknown]
  - Haemoptysis [Unknown]
  - Impaired quality of life [Not Recovered/Not Resolved]
  - Loss of personal independence in daily activities [Unknown]
  - Infective pulmonary exacerbation of cystic fibrosis [Unknown]
  - Arthralgia [Unknown]
  - Cardiovascular disorder [Unknown]

NARRATIVE: CASE EVENT DATE: 20180612
